FAERS Safety Report 14914217 (Version 1)
Quarter: 2018Q2

REPORT INFORMATION
  Report Type: Spontaneous
  Country: US (occurrence: US)
  Receive Date: 20180501
  Receipt Date: 20180501
  Transmission Date: 20180711
  Serious: Yes (Hospitalization)
  Sender: FDA-Public Use
  Company Number: None

PATIENT
  Sex: Female

DRUGS (5)
  1. PREDNISONE. [Concomitant]
     Active Substance: PREDNISONE
  2. SODIUM CHLOR [Concomitant]
     Active Substance: SODIUM CHLORIDE
  3. IPRATROPIUM/SOL ALBUTER [Concomitant]
  4. TOBRAMYCIN. [Suspect]
     Active Substance: TOBRAMYCIN
     Indication: ORAL CANDIDIASIS
     Route: 055
     Dates: start: 20170909
  5. DIGOX [Concomitant]
     Active Substance: DIGOXIN

REACTIONS (1)
  - Intestinal obstruction [None]
